FAERS Safety Report 6647665-1 (Version None)
Quarter: 2010Q1

REPORT INFORMATION
  Report Type: 
  Country: None (occurrence: None)
  Receive Date: 20100323
  Receipt Date: 20100323
  Transmission Date: 20100710
  Serious: Yes (Hospitalization)
  Sender: FDA-Public Use
  Company Number: None

PATIENT
  Age: 75 Year
  Sex: Female
  Weight: 63.9572 kg

DRUGS (6)
  1. RANIBIZUMAB [Suspect]
     Indication: RETINAL VEIN OCCLUSION
     Dosage: 5MG MONTHLY INTRAVITREAL
     Dates: start: 20091205, end: 20100318
  2. ACTIQ [Concomitant]
  3. ALLOPURINOL [Concomitant]
  4. NEURONTIN [Concomitant]
  5. PRAVASTATIN SODIUM [Concomitant]
  6. DITROPAN [Concomitant]

REACTIONS (2)
  - BALANCE DISORDER [None]
  - FALL [None]
